FAERS Safety Report 22394548 (Version 1)
Quarter: 2023Q2

REPORT INFORMATION
  Report Type: Spontaneous
  Country: US (occurrence: None)
  Receive Date: 20230531
  Receipt Date: 20230531
  Transmission Date: 20230721
  Serious: No
  Sender: FDA-Public Use
  Company Number: None

PATIENT
  Age: 13 Year
  Sex: Male

DRUGS (7)
  1. VIGABATRIN [Suspect]
     Active Substance: VIGABATRIN
     Indication: Lennox-Gastaut syndrome
     Dosage: FREQUENCY : TWICE A DAY;?
     Route: 048
  2. EPIDIOLEX [Concomitant]
     Active Substance: CANNABIDIOL
  3. BACLOFEN [Concomitant]
     Active Substance: BACLOFEN
  4. CLOBAZAM [Concomitant]
     Active Substance: CLOBAZAM
  5. VIGABATRIN [Concomitant]
     Active Substance: VIGABATRIN
  6. SODIUM ACETATE [Concomitant]
     Active Substance: SODIUM ACETATE
  7. VITAMINS [Concomitant]
     Active Substance: VITAMINS

REACTIONS (2)
  - Adverse drug reaction [None]
  - Seizure [None]

NARRATIVE: CASE EVENT DATE: 20230530
